FAERS Safety Report 15889141 (Version 1)
Quarter: 2019Q1

REPORT INFORMATION
  Report Type: Spontaneous
  Country: CN (occurrence: CN)
  Receive Date: 20190130
  Receipt Date: 20190130
  Transmission Date: 20190417
  Serious: Yes (Hospitalization)
  Sender: FDA-Public Use
  Company Number: CN-NOVOPROD-643005

PATIENT
  Age: 77 Year
  Sex: Female
  Weight: 62 kg

DRUGS (1)
  1. NOVOMIX 50 PENFILL [Suspect]
     Active Substance: INSULIN ASPART
     Indication: DIABETIC NEPHROPATHY
     Dosage: 20 IU, BID (AFTER BREAKFAST)
     Route: 058
     Dates: start: 20181120

REACTIONS (6)
  - Hypotension [Recovered/Resolved]
  - Dizziness [Recovered/Resolved]
  - Vomiting [Unknown]
  - Productive cough [Unknown]
  - Nausea [Unknown]
  - Dyspnoea [Recovered/Resolved]

NARRATIVE: CASE EVENT DATE: 20181120
